FAERS Safety Report 13229902 (Version 1)
Quarter: 2017Q1

REPORT INFORMATION
  Report Type: Spontaneous
  Country: US (occurrence: US)
  Receive Date: 20170214
  Receipt Date: 20170214
  Transmission Date: 20170428
  Serious: No
  Sender: FDA-Public Use
  Company Number: US-PFIZER INC-2017058131

PATIENT
  Age: 59 Year
  Sex: Female

DRUGS (1)
  1. XELJANZ [Suspect]
     Active Substance: TOFACITINIB CITRATE
     Dosage: 5 MG

REACTIONS (8)
  - Musculoskeletal stiffness [Unknown]
  - Arthralgia [Unknown]
  - Paraesthesia [Unknown]
  - Malaise [Unknown]
  - Joint swelling [Unknown]
  - Hypoaesthesia [Unknown]
  - Night sweats [Unknown]
  - Dyspepsia [Unknown]
